FAERS Safety Report 8795829 (Version 3)
Quarter: 2012Q4

REPORT INFORMATION
  Report Type: Report from Study
  Country: JP (occurrence: JP)
  Receive Date: 20120919
  Receipt Date: 20121214
  Transmission Date: 20130627
  Serious: Yes (Death, Hospitalization, Other)
  Sender: FDA-Public Use
  Company Number: JP-ASTELLAS-2012US007939

PATIENT
  Age: 47 Year
  Sex: Male
  Weight: 71 kg

DRUGS (15)
  1. ERLOTINIB TABLET [Suspect]
     Indication: ADENOCARCINOMA PANCREAS
     Dosage: 100 mg, UID/QD
     Route: 048
     Dates: start: 20120709, end: 20120717
  2. ERLOTINIB TABLET [Suspect]
     Dosage: 100 mg, UID/QD
     Route: 048
     Dates: start: 20120813, end: 20120902
  3. GEMZAR [Suspect]
     Indication: ADENOCARCINOMA PANCREAS
     Dosage: 1000 mg/m2, UID/QD
     Route: 041
     Dates: start: 20120709, end: 20120709
  4. GEMZAR [Suspect]
     Dosage: 1000 mg/m2, UID/QD
     Route: 041
     Dates: start: 20120813, end: 20120813
  5. GEMZAR [Suspect]
     Dosage: 1000 mg/m2, UID/QD
     Route: 041
     Dates: start: 20120820, end: 20120820
  6. GEMZAR [Suspect]
     Dosage: 1000 mg/m2, UID/QD
     Route: 041
     Dates: start: 20120827, end: 20120827
  7. OXYCONTIN [Concomitant]
     Indication: PRODUCT USED FOR UNKNOWN INDICATION
     Dosage: 10 mg, UID/QD
     Route: 048
  8. OXINORM                            /00045603/ [Concomitant]
     Indication: PRODUCT USED FOR UNKNOWN INDICATION
     Dosage: 25 mg, Unknown/D
     Route: 048
  9. MAGMITT [Concomitant]
     Indication: PROPHYLAXIS
     Dosage: 990 mg, UID/QD
     Route: 048
  10. LOXOPROFEN [Concomitant]
     Indication: PRODUCT USED FOR UNKNOWN INDICATION
     Dosage: 180 mg, UID/QD
     Route: 048
  11. NEXIUM                             /01479302/ [Concomitant]
     Indication: PROPHYLAXIS
     Dosage: 10 mg, UID/QD
     Route: 048
  12. NOVAMIN                            /00391002/ [Concomitant]
     Indication: PROPHYLAXIS
     Dosage: 5 mg, Unknown/D
     Route: 048
  13. LANTUS [Concomitant]
     Indication: DIABETES MELLITUS
     Dosage: 12 IU, UID/QD
     Route: 058
  14. NOVOLIN [Concomitant]
     Indication: DIABETES MELLITUS
     Dosage: 24 IU, UID/QD
     Route: 058
  15. MICARDIS [Concomitant]
     Indication: HYPERTENSION
     Dosage: 40 mg, UID/QD
     Route: 048
     Dates: end: 20120718

REACTIONS (8)
  - Haemoglobin decreased [Recovered/Resolved]
  - Malignant neoplasm progression [Fatal]
  - Dermatitis acneiform [Recovering/Resolving]
  - Decreased appetite [Recovering/Resolving]
  - Nausea [Recovered/Resolved]
  - Diarrhoea [Recovered/Resolved]
  - Cholangitis [Recovered/Resolved]
  - Jaundice cholestatic [Recovered/Resolved]
